FAERS Safety Report 13905499 (Version 5)
Quarter: 2021Q4

REPORT INFORMATION
  Report Type: Report from Study
  Country: CO (occurrence: CO)
  Receive Date: 20170825
  Receipt Date: 20211009
  Transmission Date: 20220303
  Serious: Yes (Other)
  Sender: FDA-Public Use
  Company Number: CO-AMGEN-COLSL2017127318

PATIENT
  Age: 65 Year
  Sex: Female

DRUGS (3)
  1. NPLATE [Suspect]
     Active Substance: ROMIPLOSTIM
     Indication: Immune thrombocytopenia
     Dosage: 250 MCG, QWK
     Route: 058
     Dates: start: 20170802
  2. NPLATE [Suspect]
     Active Substance: ROMIPLOSTIM
     Dosage: 100 MCG, QWK
     Route: 058
     Dates: start: 20170831
  3. NPLATE [Suspect]
     Active Substance: ROMIPLOSTIM
     Dosage: 100 MCG, Q2WK
     Route: 058
     Dates: start: 20170911

REACTIONS (11)
  - Thrombocytosis [Recovered/Resolved]
  - Pain in extremity [Not Recovered/Not Resolved]
  - Drug ineffective [Unknown]
  - Ear pain [Recovering/Resolving]
  - Toothache [Recovering/Resolving]
  - Gingival pain [Recovering/Resolving]
  - Chest pain [Not Recovered/Not Resolved]
  - Nasal congestion [Recovering/Resolving]
  - Chills [Recovering/Resolving]
  - Headache [Recovering/Resolving]
  - Off label use [Not Recovered/Not Resolved]

NARRATIVE: CASE EVENT DATE: 20170809
